FAERS Safety Report 5879400-9 (Version None)
Quarter: 2008Q3

REPORT INFORMATION
  Report Type: 
  Country: None (occurrence: None)
  Receive Date: 20080912
  Receipt Date: 20080904
  Transmission Date: 20090109
  Serious: Yes (Other)
  Sender: FDA-Public Use
  Company Number: B0534423A

PATIENT

DRUGS (6)
  1. PAROXETINE HCL [Suspect]
     Indication: DEPRESSION
  2. FENTANYL [Suspect]
  3. FENTANYL [Suspect]
  4. FENTANYL [Suspect]
  5. PROPOFOL [Concomitant]
  6. ISOFLURANE [Concomitant]

REACTIONS (9)
  - AGITATION [None]
  - CLONUS [None]
  - DISSOCIATION [None]
  - DRUG INTERACTION [None]
  - GLASGOW COMA SCALE ABNORMAL [None]
  - HYPERREFLEXIA [None]
  - HYPERTENSION [None]
  - HYPERTONIA [None]
  - SEROTONIN SYNDROME [None]
